FAERS Safety Report 19684981 (Version 2)
Quarter: 2025Q4

REPORT INFORMATION
  Report Type: Spontaneous
  Country: CA (occurrence: CA)
  Receive Date: 20210811
  Receipt Date: 20251030
  Transmission Date: 20260118
  Serious: Yes (Life-Threatening, Hospitalization, Other)
  Sender: ANI
  Company Number: CA-ANIPHARMA-2021-CA-001175

PATIENT
  Age: 65 Year
  Sex: Female

DRUGS (35)
  1. CANDESARTAN CILEXETIL [Suspect]
     Active Substance: CANDESARTAN CILEXETIL
     Indication: Product used for unknown indication
     Route: 048
  2. AMEVIVE [Concomitant]
     Active Substance: ALEFACEPT
     Route: 030
  3. COAL TAR [Concomitant]
     Active Substance: COAL TAR
     Route: 065
  4. CYMBALTA [Concomitant]
     Active Substance: DULOXETINE HYDROCHLORIDE
     Route: 065
  5. DOVONEX [Concomitant]
     Active Substance: CALCIPOTRIENE
     Route: 065
  6. JANUVIA [Concomitant]
     Active Substance: SITAGLIPTIN PHOSPHATE
     Route: 065
  7. PANTOPRAZOLE [Concomitant]
     Active Substance: PANTOPRAZOLE
     Route: 065
  8. ROSUVASTATIN [Concomitant]
     Active Substance: ROSUVASTATIN
     Route: 065
  9. STELARA [Concomitant]
     Active Substance: USTEKINUMAB
     Route: 058
  10. SYNTHROID [Concomitant]
     Active Substance: LEVOTHYROXINE SODIUM
     Route: 065
  11. ZOLPIDEM [Concomitant]
     Active Substance: ZOLPIDEM TARTRATE
     Route: 065
  12. BISOPROLOL [Suspect]
     Active Substance: BISOPROLOL
  13. LYRICA [Suspect]
     Active Substance: PREGABALIN
  14. METHYLPREDNISOLONE SODIUM SUCCINATE [Suspect]
     Active Substance: METHYLPREDNISOLONE SODIUM SUCCINATE
     Dosage: 100 MILLIGRAM, QD;
  15. NEXIUM [Suspect]
     Active Substance: ESOMEPRAZOLE MAGNESIUM
     Dosage: 40 MILLIGRAM;
  16. ONDANSETRON [Suspect]
     Active Substance: ONDANSETRON
  17. GLICLAZIDE [Suspect]
     Active Substance: GLICLAZIDE
  18. ZESTRIL [Suspect]
     Active Substance: LISINOPRIL
  19. PROCHLORPERAZINE [Suspect]
     Active Substance: PROCHLORPERAZINE
  20. AVAPRO [Concomitant]
     Active Substance: IRBESARTAN
  21. CYANOCOBALAMIN [Concomitant]
     Active Substance: CYANOCOBALAMIN
  22. DOMPERIDONE [Concomitant]
     Active Substance: DOMPERIDONE
  23. CALCIUM CARBONATE [Suspect]
     Active Substance: CALCIUM CARBONATE
     Route: 065
  24. HUMALOG [Concomitant]
     Active Substance: INSULIN LISPRO
  25. HYDROCHLOROTHIAZIDE [Concomitant]
     Active Substance: HYDROCHLOROTHIAZIDE
  26. LANTUS [Concomitant]
     Active Substance: INSULIN GLARGINE
  27. LEVEMIR [Concomitant]
     Active Substance: INSULIN DETEMIR
  28. MEDROL [Concomitant]
     Active Substance: METHYLPREDNISOLONE
  29. TELMISARTAN [Concomitant]
     Active Substance: TELMISARTAN
  30. COSENTYX [Suspect]
     Active Substance: SECUKINUMAB
     Dosage: 300 MG MONTH
     Route: 058
  31. ERGOCALCIFEROL [Suspect]
     Active Substance: ERGOCALCIFEROL
     Route: 065
  32. METFORMIN HYDROCHLORIDE [Suspect]
     Active Substance: METFORMIN HYDROCHLORIDE
     Route: 065
  33. METHOTREXATE [Suspect]
     Active Substance: METHOTREXATE
     Route: 065
  34. ASPIRIN [Concomitant]
     Active Substance: ASPIRIN
     Dosage: 81 MG UNK
     Route: 065
  35. ACITRETIN [Concomitant]
     Active Substance: ACITRETIN
     Route: 065

REACTIONS (54)
  - Pneumonia [Not Recovered/Not Resolved]
  - Influenza like illness [Not Recovered/Not Resolved]
  - Nausea [Not Recovered/Not Resolved]
  - Respiratory tract congestion [Not Recovered/Not Resolved]
  - Sinus congestion [Not Recovered/Not Resolved]
  - Pyrexia [Not Recovered/Not Resolved]
  - Fatigue [Not Recovered/Not Resolved]
  - Sneezing [Not Recovered/Not Resolved]
  - Rhinorrhoea [Not Recovered/Not Resolved]
  - Skin exfoliation [Not Recovered/Not Resolved]
  - Psoriasis [Not Recovered/Not Resolved]
  - Sinus disorder [Not Recovered/Not Resolved]
  - Skin haemorrhage [Not Recovered/Not Resolved]
  - Cough [Not Recovered/Not Resolved]
  - Adjustment disorder [Not Recovered/Not Resolved]
  - Affect lability [Not Recovered/Not Resolved]
  - Angina pectoris [Not Recovered/Not Resolved]
  - Anxiety [Not Recovered/Not Resolved]
  - Aphasia [Not Recovered/Not Resolved]
  - Arterial occlusive disease [Not Recovered/Not Resolved]
  - Arthritis [Not Recovered/Not Resolved]
  - Malaise [Not Recovered/Not Resolved]
  - Asthenia [Not Recovered/Not Resolved]
  - Blood pressure increased [Not Recovered/Not Resolved]
  - Carotid artery thrombosis [Not Recovered/Not Resolved]
  - Cataract [Not Recovered/Not Resolved]
  - Cerebrovascular accident [Not Recovered/Not Resolved]
  - Chest discomfort [Not Recovered/Not Resolved]
  - Confusional state [Not Recovered/Not Resolved]
  - Coordination abnormal [Not Recovered/Not Resolved]
  - Dysarthria [Not Recovered/Not Resolved]
  - Eating disorder [Not Recovered/Not Resolved]
  - Pain [Not Recovered/Not Resolved]
  - Dysphagia [Not Recovered/Not Resolved]
  - Fall [Not Recovered/Not Resolved]
  - Gangrene [Not Recovered/Not Resolved]
  - Gastrointestinal disorder [Not Recovered/Not Resolved]
  - Hemiparesis [Not Recovered/Not Resolved]
  - Hemiplegia [Not Recovered/Not Resolved]
  - Motor dysfunction [Not Recovered/Not Resolved]
  - Muscle spasticity [Not Recovered/Not Resolved]
  - Muscular weakness [Not Recovered/Not Resolved]
  - Neurologic neglect syndrome [Not Recovered/Not Resolved]
  - Headache [Not Recovered/Not Resolved]
  - Palpitations [Not Recovered/Not Resolved]
  - Personality disorder [Not Recovered/Not Resolved]
  - Product use issue [Unknown]
  - Rheumatoid arthritis [Not Recovered/Not Resolved]
  - Sensory loss [Not Recovered/Not Resolved]
  - Sinusitis [Not Recovered/Not Resolved]
  - Nasopharyngitis [Not Recovered/Not Resolved]
  - Cystitis [Not Recovered/Not Resolved]
  - Influenza [Not Recovered/Not Resolved]
  - Vomiting [Not Recovered/Not Resolved]
